FAERS Safety Report 18021289 (Version 1)
Quarter: 2020Q3

REPORT INFORMATION
  Report Type: Spontaneous
  Country: OM (occurrence: OM)
  Receive Date: 20200714
  Receipt Date: 20200714
  Transmission Date: 20201103
  Serious: No
  Sender: FDA-Public Use
  Company Number: OM-LUPIN PHARMACEUTICALS INC.-2020-01479

PATIENT
  Age: 45 Year
  Sex: Male

DRUGS (8)
  1. VANCOMYCIN [Concomitant]
     Active Substance: VANCOMYCIN
     Indication: ENDOPHTHALMITIS
     Dosage: UNK, 1 MG/0.1 ML
     Route: 065
  2. CEFTAZIDIME. [Concomitant]
     Active Substance: CEFTAZIDIME
     Dosage: 2.25 MG/0.1 ML
  3. VORICONAZOLE. [Suspect]
     Active Substance: VORICONAZOLE
     Dosage: 200 MILLIGRAM, BID
     Route: 048
  4. VORICONAZOLE. [Suspect]
     Active Substance: VORICONAZOLE
     Dosage: 50 MCG/0.1 ML
  5. CEFTAZIDIME. [Concomitant]
     Active Substance: CEFTAZIDIME
     Indication: ENDOPHTHALMITIS
     Dosage: 2.25 MG/0.1 ML (VITREOUS TAP?INJECT)
  6. VORICONAZOLE. [Suspect]
     Active Substance: VORICONAZOLE
     Indication: ENDOPHTHALMITIS
     Dosage: 400 MILLIGRAM, BID, FOLLOWED BY A MAINTENANCE DOSE OF 200 MG BID
     Route: 048
  7. CIPROFLOXACIN. [Concomitant]
     Active Substance: CIPROFLOXACIN
     Indication: ENDOPHTHALMITIS
     Dosage: 750 MILLIGRAM
  8. CEFTAZIDIME. [Concomitant]
     Active Substance: CEFTAZIDIME
     Dosage: 2.25 MG/0.1 ML

REACTIONS (1)
  - Hepatic enzyme increased [Recovered/Resolved]
